FAERS Safety Report 20080767 (Version 3)
Quarter: 2021Q4

REPORT INFORMATION
  Report Type: Other
  Country: CZ (occurrence: CZ)
  Receive Date: 20211117
  Receipt Date: 20211230
  Transmission Date: 20220303
  Serious: Yes (Hospitalization, Other)
  Sender: FDA-Public Use
  Company Number: CZ-MYLANLABS-2021M1076748

PATIENT
  Age: 60 Year
  Sex: Male

DRUGS (12)
  1. CAPECITABINE [Suspect]
     Active Substance: CAPECITABINE
     Indication: Rectal adenocarcinoma
     Dosage: UNK
     Route: 048
  2. CAPECITABINE [Suspect]
     Active Substance: CAPECITABINE
     Dosage: 3000 MILLIGRAM, QD
     Route: 048
     Dates: start: 20171218, end: 20180215
  3. TRAMADOL [Suspect]
     Active Substance: TRAMADOL
     Indication: Pain
     Route: 048
  4. FLUOROURACIL\IRINOTECAN\LEUCOVORIN [Suspect]
     Active Substance: FLUOROURACIL\IRINOTECAN\LEUCOVORIN
     Indication: Rectal adenocarcinoma
     Route: 065
     Dates: start: 202010
  5. OXALIPLATIN [Suspect]
     Active Substance: OXALIPLATIN
     Indication: Rectal adenocarcinoma
     Route: 065
     Dates: start: 201810, end: 201906
  6. IRINOTECAN [Suspect]
     Active Substance: IRINOTECAN
     Indication: Rectal adenocarcinoma
     Dosage: UNK
     Route: 065
     Dates: start: 202010
  7. IRINOTECAN [Suspect]
     Active Substance: IRINOTECAN
     Indication: Colorectal cancer metastatic
  8. LEUCOVORIN CALCIUM [Suspect]
     Active Substance: LEUCOVORIN CALCIUM
     Indication: Rectal adenocarcinoma
     Dosage: UNK (AS PART OF FOLFOX TREATMENT)
     Route: 065
     Dates: start: 201810, end: 201906
  9. LEUCOVORIN CALCIUM [Suspect]
     Active Substance: LEUCOVORIN CALCIUM
     Indication: Malignant neoplasm progression
  10. FLUOROURACIL\LEUCOVORIN CALCIUM\OXALIPLATIN [Suspect]
     Active Substance: FLUOROURACIL\LEUCOVORIN CALCIUM\OXALIPLATIN
     Indication: Rectal adenocarcinoma
     Route: 065
     Dates: start: 201810
  11. FLUOROURACIL\LEUCOVORIN CALCIUM\OXALIPLATIN [Suspect]
     Active Substance: FLUOROURACIL\LEUCOVORIN CALCIUM\OXALIPLATIN
     Indication: Malignant neoplasm progression
  12. ERBITUX [Concomitant]
     Active Substance: CETUXIMAB

REACTIONS (10)
  - Functional gastrointestinal disorder [Unknown]
  - Toxic cardiomyopathy [Recovering/Resolving]
  - Drug intolerance [Recovered/Resolved]
  - Nausea [Unknown]
  - Skin toxicity [Unknown]
  - Vomiting [Recovered/Resolved]
  - Circulatory collapse [Recovered/Resolved]
  - Palpitations [Unknown]
  - Cardiac disorder [Recovering/Resolving]
  - Urogenital disorder [Unknown]

NARRATIVE: CASE EVENT DATE: 20201001
